FAERS Safety Report 17627529 (Version 2)
Quarter: 2020Q2

REPORT INFORMATION
  Report Type: Spontaneous
  Country: US (occurrence: US)
  Receive Date: 20200405
  Receipt Date: 20200405
  Transmission Date: 20200713
  Serious: No
  Sender: FDA-Public Use
  Company Number: US-GALDERMA-US19077777

PATIENT
  Age: 22 Year
  Sex: Female

DRUGS (6)
  1. PROACTIV MD ADAPALENE ACNE TREATMENT [Suspect]
     Active Substance: ADAPALENE
     Indication: ACNE
     Dosage: 0.1%
     Route: 061
     Dates: start: 20190119, end: 2019
  2. PROACTIV MD DEEP CLEANSING FACE WASH [Concomitant]
     Active Substance: COSMETICS
     Indication: ACNE
     Route: 061
     Dates: start: 20190119, end: 2019
  3. PROACTIV MD DAILY OIL CONTROL SPF 30 [Suspect]
     Active Substance: AVOBENZONE\OCTISALATE\OCTOCRYLENE
     Indication: ACNE
     Route: 061
     Dates: start: 20190119, end: 2019
  4. BIRTH CONTROL [Concomitant]
     Active Substance: UNSPECIFIED INGREDIENT
     Indication: CONTRACEPTION
  5. PROACTIV DEEP CLEANSING WASH [Concomitant]
     Active Substance: SALICYLIC ACID
     Indication: ACNE
     Route: 061
     Dates: start: 20190119, end: 2019
  6. PROACTIV SOLUTION BLACKHEAD DISSOLVING [Concomitant]
     Active Substance: SALICYLIC ACID
     Indication: ACNE
     Route: 061
     Dates: start: 20190119, end: 2019

REACTIONS (10)
  - Hypersensitivity [Recovered/Resolved]
  - Acne [Recovered/Resolved]
  - Dry skin [Recovered/Resolved]
  - Pain of skin [Recovered/Resolved]
  - Inappropriate schedule of product administration [Recovered/Resolved]
  - Sensitive skin [Recovered/Resolved]
  - Erythema [Recovered/Resolved]
  - Skin irritation [Recovered/Resolved]
  - Underdose [Recovered/Resolved]
  - Seborrhoea [Recovered/Resolved]

NARRATIVE: CASE EVENT DATE: 20190119
